FAERS Safety Report 18130769 (Version 1)
Quarter: 2020Q3

REPORT INFORMATION
  Report Type: Spontaneous
  Country: ES (occurrence: ES)
  Receive Date: 20200810
  Receipt Date: 20200810
  Transmission Date: 20201103
  Serious: Yes (Other)
  Sender: FDA-Public Use
  Company Number: ES-EPIC PHARMA LLC-2020EPC00239

PATIENT
  Age: 72 Year
  Sex: Female

DRUGS (2)
  1. ZONISAMIDE. [Suspect]
     Active Substance: ZONISAMIDE
     Indication: ESSENTIAL TREMOR
     Dosage: 25 MG, 1X/DAY
     Route: 048
  2. ZONISAMIDE. [Suspect]
     Active Substance: ZONISAMIDE
     Dosage: 50 MG, 1X/DAY
     Route: 048

REACTIONS (2)
  - Choroidal effusion [Recovered/Resolved]
  - Choroidal detachment [Recovered/Resolved]
